FAERS Safety Report 23178011 (Version 1)
Quarter: 2023Q4

REPORT INFORMATION
  Report Type: Spontaneous
  Country: US (occurrence: US)
  Receive Date: 20231113
  Receipt Date: 20231113
  Transmission Date: 20240109
  Serious: Yes (Other)
  Sender: FDA-Public Use
  Company Number: US-BRISTOL-MYERS SQUIBB COMPANY-2023-162586

PATIENT
  Age: 62 Year
  Sex: Male
  Weight: 105.1 kg

DRUGS (4)
  1. ABRAXANE [Suspect]
     Active Substance: PACLITAXEL
     Indication: Pancreatic carcinoma
     Route: 042
     Dates: start: 20210217, end: 20220104
  2. QUEMLICLUSTAT [Concomitant]
     Active Substance: QUEMLICLUSTAT
     Indication: Pancreatic carcinoma
     Route: 042
     Dates: start: 20210217, end: 20220104
  3. ZIMBERELIMAB [Concomitant]
     Active Substance: ZIMBERELIMAB
     Indication: Pancreatic carcinoma
     Route: 042
     Dates: start: 20210217, end: 20220104
  4. GEMCITABINE [Concomitant]
     Active Substance: GEMCITABINE
     Indication: Pancreatic carcinoma
     Route: 042
     Dates: start: 20210217, end: 20220104

REACTIONS (1)
  - Malignant neoplasm progression [Unknown]
